FAERS Safety Report 4550649-0 (Version None)
Quarter: 2004Q4

REPORT INFORMATION
  Report Type: 
  Country: None (occurrence: None)
  Receive Date: 20041227
  Receipt Date: 20040903
  Transmission Date: 20050328
  Serious: No
  Sender: FDA-Public Use
  Company Number: 04P-163-0272391-00

PATIENT
  Age: 65 Year
  Sex: Female
  Weight: 72.1219 kg

DRUGS (7)
  1. HUMIRA [Suspect]
     Indication: RHEUMATOID ARTHRITIS
     Dosage: 40 MG, 1 IN 2 WK, SUBCUTANEOUS
     Route: 058
     Dates: start: 20040201, end: 20040301
  2. HUMIRA [Suspect]
     Indication: RHEUMATOID ARTHRITIS
     Dosage: 40 MG, 1 IN 2 WK, SUBCUTANEOUS
     Route: 058
     Dates: start: 20040301
  3. PREDNISONE METHOTREXATE SODIUM [Concomitant]
  4. METOPROLOL SUCCINATE [Concomitant]
  5. MELOXICAM [Concomitant]
  6. MULTIVITAMIN [Concomitant]
  7. CALCIUM GLUCONATE [Concomitant]

REACTIONS (2)
  - BRONCHITIS [None]
  - SKIN LACERATION [None]
